FAERS Safety Report 7027358-1 (Version None)
Quarter: 2010Q4

REPORT INFORMATION
  Report Type: 
  Country: None (occurrence: None)
  Receive Date: 20101004
  Receipt Date: 20100928
  Transmission Date: 20110411
  Serious: Yes (Death, Hospitalization)
  Sender: FDA-Public Use
  Company Number: PHHY2010BE64051

PATIENT
  Age: 99 Year
  Sex: Female

DRUGS (3)
  1. VOLTAREN [Suspect]
     Indication: BACK PAIN
     Dosage: TWICE DAILY
     Route: 030
     Dates: start: 20090929, end: 20091001
  2. LOSFERRON [Concomitant]
     Dosage: UNK
  3. PANADOL [Concomitant]
     Dosage: UNK

REACTIONS (4)
  - ABDOMINAL PAIN [None]
  - DUODENAL PERFORATION [None]
  - GENERAL PHYSICAL HEALTH DETERIORATION [None]
  - INCORRECT DOSE ADMINISTERED [None]
